FAERS Safety Report 15536318 (Version 2)
Quarter: 2018Q4

REPORT INFORMATION
  Report Type: Spontaneous
  Country: US (occurrence: US)
  Receive Date: 20181022
  Receipt Date: 20181126
  Transmission Date: 20190205
  Serious: No
  Sender: FDA-Public Use
  Company Number: US-ROCHE-2201448

PATIENT
  Age: 71 Year
  Sex: Male

DRUGS (2)
  1. ACTILYSE [Suspect]
     Active Substance: ALTEPLASE
     Indication: CAROTID ARTERY OCCLUSION
     Dosage: 0.09 MG/KG IV BOLUS WITH IN 20 MIN OF SYMPTOM ONSET FOLLOWED BY A 0.81 MG/KG INFUSION OVER NEXT HOUR
     Route: 042
  2. ACTILYSE [Suspect]
     Active Substance: ALTEPLASE
     Indication: CEREBRAL ARTERY EMBOLISM
     Dosage: 0.09 MG/KG IV BOLUS WITH IN 20 MIN OF SYMPTOM ONSET FOLLOWED BY A 0.81 MG/KG INFUSION OVER NEXT HOUR
     Route: 040

REACTIONS (2)
  - No adverse event [Unknown]
  - Drug ineffective [Unknown]
